FAERS Safety Report 9281257 (Version 1)
Quarter: 2013Q2

REPORT INFORMATION
  Report Type: Spontaneous
  Country: US (occurrence: US)
  Receive Date: 20130509
  Receipt Date: 20130509
  Transmission Date: 20140414
  Serious: No
  Sender: FDA-Public Use
  Company Number: US-TEVA-401987USA

PATIENT
  Age: 50 Year
  Sex: Male
  Weight: 80.81 kg

DRUGS (3)
  1. COPAXONE [Suspect]
     Indication: MULTIPLE SCLEROSIS
     Dates: start: 20130315
  2. TOPROL [Concomitant]
     Indication: HYPERTENSION
  3. COZAAR [Concomitant]
     Indication: HYPERTENSION
     Dosage: 100 MILLIGRAM DAILY;

REACTIONS (1)
  - Alopecia [Not Recovered/Not Resolved]
